FAERS Safety Report 5635624-7 (Version None)
Quarter: 2008Q1

REPORT INFORMATION
  Report Type: 
  Country: None (occurrence: None)
  Receive Date: 20080222
  Receipt Date: 20080212
  Transmission Date: 20080703
  Serious: Yes (Death, Hospitalization)
  Sender: FDA-Public Use
  Company Number: US-ELI_LILLY_AND_COMPANY-US200802002504

PATIENT
  Sex: Male

DRUGS (2)
  1. HUMALOG [Suspect]
     Dosage: UNK, UNK
     Dates: start: 19790101
  2. HUMULIN R [Suspect]
     Dosage: UNK, UNK
     Dates: start: 19790101

REACTIONS (3)
  - DEATH [None]
  - PNEUMONIA [None]
  - URINARY TRACT INFECTION [None]
